FAERS Safety Report 20750754 (Version 2)
Quarter: 2022Q3

REPORT INFORMATION
  Report Type: Spontaneous
  Country: US (occurrence: US)
  Receive Date: 20220426
  Receipt Date: 20220816
  Transmission Date: 20221026
  Serious: No
  Sender: FDA-Public Use
  Company Number: US-PFIZER INC-202200494172

PATIENT
  Age: 81 Year
  Sex: Female
  Weight: 66.45 kg

DRUGS (1)
  1. PRISTIQ EXTENDED-RELEASE [Suspect]
     Active Substance: DESVENLAFAXINE SUCCINATE
     Indication: Depression
     Dosage: EXTENDED RELEASE 50MG TABLET, 1 TABLET BY MOUTH ONCE A DAY
     Route: 048

REACTIONS (6)
  - Extrasystoles [Recovering/Resolving]
  - Blood calcium increased [Recovering/Resolving]
  - Body height decreased [Recovering/Resolving]
  - Weight decreased [Recovering/Resolving]
  - Anxiety [Recovering/Resolving]
  - Panic reaction [Recovering/Resolving]

NARRATIVE: CASE EVENT DATE: 20210101
